FAERS Safety Report 6419578-1 (Version None)
Quarter: 2009Q4

REPORT INFORMATION
  Report Type: 
  Country: None (occurrence: None)
  Receive Date: 20091027
  Receipt Date: 20091026
  Transmission Date: 20100525
  Serious: Yes (Hospitalization, Other)
  Sender: FDA-Public Use
  Company Number: SP02583

PATIENT
  Age: 61 Year
  Sex: Female

DRUGS (3)
  1. MOVIPREP [Suspect]
     Indication: BOWEL PREPARATION
     Dosage: ORAL
     Route: 048
     Dates: start: 20090512, end: 20090512
  2. FLEET [Suspect]
     Indication: BOWEL PREPARATION
     Dosage: ORAL
     Route: 048
     Dates: start: 20090512, end: 20090512
  3. THYRONAJOD [Concomitant]

REACTIONS (13)
  - ABDOMINAL PAIN [None]
  - DYSPHAGIA [None]
  - ERYTHEMA [None]
  - EYE SWELLING [None]
  - EYELID OEDEMA [None]
  - NAUSEA [None]
  - PERIORBITAL DISORDER [None]
  - PRURITUS [None]
  - RASH VESICULAR [None]
  - SALIVARY GLAND DISORDER [None]
  - SALIVARY GLAND ENLARGEMENT [None]
  - SJOGREN'S SYNDROME [None]
  - VOMITING [None]
